FAERS Safety Report 5590707-5 (Version None)
Quarter: 2008Q1

REPORT INFORMATION
  Report Type: 
  Country: None (occurrence: None)
  Receive Date: 20080114
  Receipt Date: 20080109
  Transmission Date: 20080703
  Serious: Yes (Other)
  Sender: FDA-Public Use
  Company Number: ES-PFIZER INC-2007062491

PATIENT
  Sex: Female
  Weight: 52 kg

DRUGS (4)
  1. DETRUSITOL LA [Suspect]
     Indication: URINARY INCONTINENCE
     Route: 048
  2. ORAP [Concomitant]
     Route: 048
  3. OPENVAS [Concomitant]
     Route: 048
  4. BOTOX [Concomitant]

REACTIONS (1)
  - DRUG ABUSE [None]
